FAERS Safety Report 4911815-5 (Version None)
Quarter: 2006Q1

REPORT INFORMATION
  Report Type: 
  Country: None (occurrence: None)
  Receive Date: 20060215
  Receipt Date: 20060112
  Transmission Date: 20060701
  Serious: Yes (Other)
  Sender: FDA-Public Use
  Company Number: US-BOEHRINGER INGELHEIM PHARMACEUTICALS, INC.-2006-BP-00398BP

PATIENT
  Sex: Male
  Weight: 75.4 kg

DRUGS (16)
  1. APTIVUS [Suspect]
     Indication: HIV INFECTION
     Dosage: TPV/RTV 1000/400 MG
     Route: 048
     Dates: start: 20051130, end: 20060111
  2. FUZEON [Suspect]
     Indication: HIV INFECTION
     Route: 058
     Dates: start: 20051130, end: 20060111
  3. TRUVADA [Suspect]
     Indication: HIV INFECTION
     Route: 048
     Dates: start: 20051130, end: 20060111
  4. PROCRIT [Concomitant]
     Route: 058
  5. ANDROGEL [Concomitant]
  6. NIASPAN [Concomitant]
  7. FERROUS SULFATE TAB [Concomitant]
  8. TRICOR [Concomitant]
  9. AMBIEN [Concomitant]
  10. ACYCLOVIR SODIUM [Concomitant]
  11. NEXIUM [Concomitant]
  12. MARINOL [Concomitant]
  13. BACTRIUM [Concomitant]
  14. ZOVIRAX [Concomitant]
  15. ZRTEC-D [Concomitant]
  16. PROZAC [Concomitant]

REACTIONS (5)
  - BLOOD PRESSURE SYSTOLIC INCREASED [None]
  - CANDIDIASIS [None]
  - HYPERSENSITIVITY [None]
  - OESOPHAGEAL INFECTION [None]
  - STEVENS-JOHNSON SYNDROME [None]
